FAERS Safety Report 6431139-7 (Version None)
Quarter: 2009Q4

REPORT INFORMATION
  Report Type: 
  Country: None (occurrence: None)
  Receive Date: 20091106
  Receipt Date: 20091103
  Transmission Date: 20100525
  Serious: Yes (Hospitalization)
  Sender: FDA-Public Use
  Company Number: ES-JNJFOC-20091100440

PATIENT
  Age: 13 Year
  Sex: Male

DRUGS (2)
  1. FAMOTIDINE [Suspect]
  2. FAMOTIDINE [Suspect]
     Indication: ABDOMINAL PAIN UPPER

REACTIONS (1)
  - HEPATITIS CHOLESTATIC [None]
